FAERS Safety Report 5801377-2 (Version None)
Quarter: 2008Q2

REPORT INFORMATION
  Report Type: 
  Country: None (occurrence: None)
  Receive Date: 20080626
  Receipt Date: 20070531
  Transmission Date: 20081010
  Serious: Yes (Other)
  Sender: FDA-Public Use
  Company Number: AEUSA200700134

PATIENT
  Age: 67 Year
  Sex: Female
  Weight: 72.5755 kg

DRUGS (18)
  1. GAMIMUNE N. 5% (IMMUNE GLOBULIN INTRAVENOUS (HUMAN)) [Suspect]
     Indication: PERITONEAL DIALYSIS
  2. EXTRANEAL [Suspect]
  3. LANTUS [Concomitant]
  4. HUMALOG [Concomitant]
  5. NEURONTIN [Concomitant]
  6. ACEON /00790702/ [Concomitant]
  7. ZYLOPRIM [Concomitant]
  8. PACERONE [Concomitant]
  9. NORVASC [Concomitant]
  10. PHOSLO [Concomitant]
  11. PRILOSEC /00661203/ [Concomitant]
  12. LEVAQUIN [Concomitant]
  13. PRINIVIL [Concomitant]
  14. LOPRESSOR [Concomitant]
  15. NEPHROCAPS /01041101/ [Concomitant]
  16. NIASPAN [Concomitant]
  17. CRESTOR /01588602/ [Concomitant]
  18. COUMADIN [Concomitant]

REACTIONS (1)
  - BLOOD GLUCOSE FALSE POSITIVE [None]
